FAERS Safety Report 24921613 (Version 5)
Quarter: 2025Q2

REPORT INFORMATION
  Report Type: Report from Study
  Country: CA (occurrence: CA)
  Receive Date: 20250204
  Receipt Date: 20250418
  Transmission Date: 20250717
  Serious: Yes (Hospitalization)
  Sender: UCB
  Company Number: CA-UCBSA-2025006144

PATIENT
  Age: 53 Year
  Sex: Male

DRUGS (12)
  1. BIMEKIZUMAB [Suspect]
     Active Substance: BIMEKIZUMAB
     Indication: Psoriasis
     Dosage: 320 MILLIGRAM, EV 4 WEEKS
     Route: 058
     Dates: start: 20240906
  2. BIMEKIZUMAB [Suspect]
     Active Substance: BIMEKIZUMAB
     Dosage: 320 MILLIGRAM, EV 8 WEEKS
     Route: 058
  3. OZEMPIC [Concomitant]
     Active Substance: SEMAGLUTIDE
     Indication: Product used for unknown indication
  4. CITALOPRAM [Concomitant]
     Active Substance: CITALOPRAM
     Indication: Product used for unknown indication
  5. ZOPICLONE [Concomitant]
     Active Substance: ZOPICLONE
     Indication: Product used for unknown indication
  6. OXYCODONE [Concomitant]
     Active Substance: OXYCODONE
     Indication: Product used for unknown indication
  7. WELLBUTRIN [Concomitant]
     Active Substance: BUPROPION HYDROCHLORIDE
     Indication: Product used for unknown indication
  8. CILAZAPRIL ANHYDROUS [Concomitant]
     Active Substance: CILAZAPRIL ANHYDROUS
     Indication: Product used for unknown indication
  9. FLUOXETINE [Concomitant]
     Active Substance: FLUOXETINE HYDROCHLORIDE
     Indication: Product used for unknown indication
  10. AMLODIPINE [Concomitant]
     Active Substance: AMLODIPINE BESYLATE
     Indication: Product used for unknown indication
  11. LORAZEPAM [Concomitant]
     Active Substance: LORAZEPAM
     Indication: Product used for unknown indication
  12. ATORVASTATIN [Concomitant]
     Active Substance: ATORVASTATIN
     Indication: Product used for unknown indication

REACTIONS (4)
  - Localised infection [Recovering/Resolving]
  - Debridement [Recovering/Resolving]
  - Psoriasis [Unknown]
  - Product dose omission issue [Unknown]

NARRATIVE: CASE EVENT DATE: 20241201
